FAERS Safety Report 7048130-2 (Version None)
Quarter: 2010Q4

REPORT INFORMATION
  Report Type: 
  Country: None (occurrence: None)
  Receive Date: 20101015
  Receipt Date: 20101008
  Transmission Date: 20110411
  Serious: Yes (Other)
  Sender: FDA-Public Use
  Company Number: CHPA2010DK15907

PATIENT
  Sex: Male

DRUGS (1)
  1. OTRIVIN [Suspect]
     Dosage: UNK, UNK
     Route: 065

REACTIONS (3)
  - COMPUTERISED TOMOGRAM ABNORMAL [None]
  - NASAL SINUS CANCER [None]
  - POSITRON EMISSION TOMOGRAM ABNORMAL [None]
